FAERS Safety Report 9420844 (Version 1)
Quarter: 2013Q3

REPORT INFORMATION
  Report Type: Spontaneous
  Country: US (occurrence: US)
  Receive Date: 20130725
  Receipt Date: 20130725
  Transmission Date: 20140515
  Serious: No
  Sender: FDA-Public Use
  Company Number: US-ABBOTT-13P-163-1076635-00

PATIENT
  Sex: Female

DRUGS (3)
  1. SYNTHROID 125 MCG [Suspect]
     Indication: PRODUCT USED FOR UNKNOWN INDICATION
  2. SYNTHROID 137 MCG [Suspect]
     Indication: PRODUCT USED FOR UNKNOWN INDICATION
  3. NORTREL [Concomitant]
     Indication: CONTRACEPTION

REACTIONS (2)
  - Menorrhagia [Unknown]
  - Blood thyroid stimulating hormone increased [Unknown]
